APPROVED DRUG PRODUCT: CUPRIMINE
Active Ingredient: PENICILLAMINE
Strength: 125MG
Dosage Form/Route: CAPSULE;ORAL
Application: N019853 | Product #002
Applicant: VALEANT PHARMACEUTICALS INTERNATIONAL
Approved: Approved Prior to Jan 1, 1982 | RLD: No | RS: No | Type: DISCN